FAERS Safety Report 7818226-3 (Version None)
Quarter: 2011Q4

REPORT INFORMATION
  Report Type: 
  Country: None (occurrence: None)
  Receive Date: 20111017
  Receipt Date: 20110930
  Transmission Date: 20120403
  Serious: No
  Sender: FDA-Public Use
  Company Number: DE-PFIZER INC-2011229240

PATIENT

DRUGS (1)
  1. VFEND [Suspect]

REACTIONS (1)
  - NO ADVERSE EVENT [None]
